FAERS Safety Report 25745661 (Version 1)
Quarter: 2025Q3

REPORT INFORMATION
  Report Type: Spontaneous
  Country: US (occurrence: US)
  Receive Date: 20250901
  Receipt Date: 20250901
  Transmission Date: 20251021
  Serious: No
  Sender: AMGEN
  Company Number: US-AMGEN-USASP2025173261

PATIENT
  Age: 62 Year
  Sex: Male

DRUGS (7)
  1. OTEZLA [Suspect]
     Active Substance: APREMILAST
     Indication: Psoriasis
     Route: 048
  2. ELIQUIS [Concomitant]
     Active Substance: APIXABAN
  3. SIMVASTATIN [Concomitant]
     Active Substance: SIMVASTATIN
  4. CARVEDILOL [Concomitant]
     Active Substance: CARVEDILOL
  5. FUROSEMIDE [Concomitant]
     Active Substance: FUROSEMIDE
  6. LOSARTAN POTASSIUM [Concomitant]
     Active Substance: LOSARTAN POTASSIUM
  7. TREMFYA [Concomitant]
     Active Substance: GUSELKUMAB

REACTIONS (1)
  - Diarrhoea [Unknown]
